FAERS Safety Report 7896742 (Version 6)
Quarter: 2013Q1

REPORT INFORMATION
  Report Type: Report from Study
  Country: US (occurrence: US)
  Receive Date: 20110413
  Receipt Date: 20130306
  Transmission Date: 20140127
  Serious: Yes (Other)
  Sender: FDA-Public Use
  Company Number: US-RB-024571-11

PATIENT
  Age: 60 Year
  Sex: Male

DRUGS (9)
  1. SUBOXONE TABLET [Suspect]
     Dosage: DOSAGE INFORMATION UNKNOWN- PRESCRIBED 48 MG DAILY TOOK UP TO 80 MG
     Route: 060
     Dates: start: 200602
  2. SUBOXONE TABLET [Suspect]
     Dosage: DOSAGE INFORMATION UNKNOWN
     Route: 065
     Dates: start: 20080301
  3. SUBOXONE TABLET [Suspect]
     Route: 060
     Dates: start: 2010
  4. SUBOXONE TABLET [Suspect]
     Indication: DRUG DEPENDENCE
     Route: 060
     Dates: start: 20110719, end: 20110726
  5. SUBOXONE FILM [Suspect]
     Indication: DRUG DEPENDENCE
     Route: 060
     Dates: start: 201201
  6. ATENOLOL [Concomitant]
     Indication: HYPERTENSION
     Route: 048
  7. ALTACE [Concomitant]
     Indication: HYPERTENSION
     Route: 048
  8. COMBIVENT INHALER [Concomitant]
     Indication: CHRONIC OBSTRUCTIVE PULMONARY DISEASE
     Dosage: UNKNOWN DOSAGE 4 TIMES A DAY
     Route: 065
  9. TEGRETOL [Concomitant]
     Route: 065

REACTIONS (20)
  - Intentional drug misuse [Recovered/Resolved]
  - Convulsion [Recovered/Resolved]
  - Substance abuse [Recovered/Resolved]
  - Prescribed overdose [Recovered/Resolved]
  - Toothache [Recovered/Resolved]
  - Tooth abscess [Recovered/Resolved]
  - Drug withdrawal syndrome [Recovered/Resolved]
  - Asthenia [Recovered/Resolved]
  - Hypotension [Recovered/Resolved]
  - Weight decreased [Recovered/Resolved]
  - Insomnia [Recovered/Resolved]
  - Arthralgia [Recovered/Resolved]
  - Abdominal pain upper [Recovered/Resolved]
  - Decreased appetite [Recovered/Resolved]
  - Back pain [Recovered/Resolved]
  - Energy increased [Not Recovered/Not Resolved]
  - Cardiac disorder [Not Recovered/Not Resolved]
  - Drug abuse [Not Recovered/Not Resolved]
  - Underdose [Recovered/Resolved]
  - Therapeutic response decreased [Unknown]
